FAERS Safety Report 12747196 (Version 3)
Quarter: 2016Q4

REPORT INFORMATION
  Report Type: Report from Study
  Country: US (occurrence: US)
  Receive Date: 20160915
  Receipt Date: 20161027
  Transmission Date: 20170207
  Serious: Yes (Hospitalization, Other)
  Sender: FDA-Public Use
  Company Number: US-SAOL THERAPEUTICS-2016SAO00517

PATIENT
  Age: 64 Year
  Sex: Female

DRUGS (2)
  1. LIORESAL [Suspect]
     Active Substance: BACLOFEN
     Indication: MUSCLE SPASTICITY
     Dosage: 71.15 ?G, \DAY
     Route: 037
     Dates: start: 20160204
  2. LIORESAL [Suspect]
     Active Substance: BACLOFEN
     Indication: MULTIPLE SCLEROSIS
     Dosage: 75 ?G, \DAY
     Route: 037

REACTIONS (5)
  - Medical device site ulcer [Recovered/Resolved]
  - Secretion discharge [Recovered/Resolved]
  - Medical device site erosion [Recovered/Resolved]
  - Wound dehiscence [Recovered/Resolved]
  - Implant site infection [Recovered/Resolved]

NARRATIVE: CASE EVENT DATE: 201608
